FAERS Safety Report 17653213 (Version 2)
Quarter: 2020Q2

REPORT INFORMATION
  Report Type: Spontaneous
  Country: BR (occurrence: BR)
  Receive Date: 20200409
  Receipt Date: 20200424
  Transmission Date: 20200713
  Serious: Yes (Other)
  Sender: FDA-Public Use
  Company Number: BR-B.I. PHARMACEUTICALS,INC./RIDGEFIELD-2020-MI-018412

PATIENT
  Age: 93 Year
  Sex: Female
  Weight: 48 kg

DRUGS (19)
  1. PURAN [Concomitant]
     Active Substance: LEVOTHYROXINE SODIUM
     Indication: THYROID DISORDER
     Dosage: PURAN T 4 50MG 1 X PILL DAILY
     Route: 048
     Dates: start: 2015
  2. SEROQUEL [Concomitant]
     Active Substance: QUETIAPINE FUMARATE
     Indication: DRUG THERAPY
     Dosage: SEROQUEL 25 MG 1 X PILL AT NIGHT BEFORE SLEEP
     Route: 048
     Dates: start: 2019
  3. PANTOPRAZOL [PANTOPRAZOLE] [Concomitant]
     Active Substance: PANTOPRAZOLE
     Indication: PROPHYLAXIS
     Dosage: PANTOPRAZOL 40MG 1X PILL  DAILY
     Route: 048
     Dates: start: 2015
  4. LEVOID [Concomitant]
     Active Substance: LEVOTHYROXINE
     Indication: THYROID DISORDER
     Route: 065
  5. PRADAXA [Suspect]
     Active Substance: DABIGATRAN ETEXILATE MESYLATE
     Indication: ANTICOAGULANT THERAPY
     Dosage: PRADAXA 110 MG CAP DURA CT BL AL/AL X 60 2 X A DAY
     Route: 048
     Dates: start: 2015
  6. PRADAXA [Suspect]
     Active Substance: DABIGATRAN ETEXILATE MESYLATE
     Indication: ATRIAL FIBRILLATION
     Route: 048
  7. ALENIA [BUDESONIDE;FORMOTEROL FUMARATE] [Concomitant]
     Active Substance: BUDESONIDE\FORMOTEROL FUMARATE
     Indication: CHRONIC OBSTRUCTIVE PULMONARY DISEASE
     Dosage: ALENIA 6/200 MCG 2X PUFFS DAILY
     Route: 048
     Dates: start: 2010
  8. ZOLPIDEM [Concomitant]
     Active Substance: ZOLPIDEM TARTRATE
     Indication: ANXIOLYTIC THERAPY
  9. LASIX [Concomitant]
     Active Substance: FUROSEMIDE
     Indication: HYPERTENSION
  10. ZOLPIDEM [Concomitant]
     Active Substance: ZOLPIDEM TARTRATE
     Indication: SLEEP DISORDER THERAPY
     Dosage: ZOLPIDEN 10 MG 1 X PILL AT INIGHT BEFORE SLEEP
     Route: 048
     Dates: start: 2018
  11. LOSARTAN. [Concomitant]
     Active Substance: LOSARTAN
     Indication: HYPERTENSION
     Dosage: LOSARTAN 25 MG 2X PILL DAILY
     Route: 048
     Dates: start: 2010
  12. SILDENAFIL. [Concomitant]
     Active Substance: SILDENAFIL
     Indication: VASODILATATION
  13. FRONTAL [Concomitant]
     Active Substance: ALPRAZOLAM
     Route: 048
  14. SINVASTATINA [Concomitant]
     Active Substance: SIMVASTATIN
     Indication: BLOOD CHOLESTEROL INCREASED
     Dosage: SINVASTATINA 20 MG 1 X PILL  AT NIGHT SINCE 205
     Route: 048
     Dates: start: 2005
  15. MOTILIUM [Concomitant]
     Active Substance: DOMPERIDONE
     Indication: DYSPEPSIA
  16. FRONTAL [Concomitant]
     Active Substance: ALPRAZOLAM
     Indication: DRUG THERAPY
     Dosage: FRONTAL 30 MG 1 X PILL AT NIGHT BEFORE SLEEP
     Route: 048
     Dates: start: 2010
  17. LASIX [Concomitant]
     Active Substance: FUROSEMIDE
     Indication: DIURETIC THERAPY
     Dosage: LAFIX 40 MG  1X PILL DAILY
     Route: 048
     Dates: start: 2000
  18. MOTILIUM [Concomitant]
     Active Substance: DOMPERIDONE
     Indication: PROPHYLAXIS
     Dosage: MOTILLIUM 10 MG 2 X PILLS  DAILY
     Route: 048
     Dates: start: 2010
  19. SILDENAFIL. [Concomitant]
     Active Substance: SILDENAFIL
     Indication: CHRONIC OBSTRUCTIVE PULMONARY DISEASE
     Dosage: SILDENAFIL 25MG 3X PILLS  DAILY
     Route: 065
     Dates: start: 2017

REACTIONS (9)
  - Ocular hyperaemia [Not Recovered/Not Resolved]
  - Capillary fragility [Not Recovered/Not Resolved]
  - Sepsis [Unknown]
  - Rash macular [Unknown]
  - Pyrexia [Unknown]
  - Seizure [Recovered/Resolved]
  - Skin exfoliation [Not Recovered/Not Resolved]
  - Skin discolouration [Not Recovered/Not Resolved]
  - Urinary tract infection [Unknown]

NARRATIVE: CASE EVENT DATE: 20190509
